FAERS Safety Report 9590278 (Version 1)
Quarter: 2013Q4

REPORT INFORMATION
  Report Type: Spontaneous
  Country: US (occurrence: US)
  Receive Date: 20131003
  Receipt Date: 20131003
  Transmission Date: 20140711
  Serious: No
  Sender: FDA-Public Use
  Company Number: US-AMGEN-USASP2012076609

PATIENT
  Age: 63 Year
  Sex: Female

DRUGS (10)
  1. ENBREL [Suspect]
     Indication: RHEUMATOID ARTHRITIS
     Dosage: 50 MG, QWK
     Route: 058
  2. ENBREL [Suspect]
     Indication: PSORIASIS
  3. ENBREL [Suspect]
     Indication: OSTEOARTHRITIS
  4. MEDROL                             /00049601/ [Concomitant]
     Dosage: 2 MG, UNK
  5. ZYRTEC [Concomitant]
     Dosage: 10 MG, UNK CHW
  6. LISINOPRIL [Concomitant]
     Dosage: 10 MG, UNK
  7. SIMVASTATIN [Concomitant]
     Dosage: 20 MG, UNK
  8. KRILL OMEGA RED OIL [Concomitant]
     Dosage: 1000 MG, UNK
  9. ALEVE [Concomitant]
     Dosage: 220 MG, UNK
  10. TYLENOL                            /00020001/ [Concomitant]
     Dosage: 325 MG, UNK

REACTIONS (1)
  - Sinusitis [Unknown]
